FAERS Safety Report 10857529 (Version 1)
Quarter: 2015Q1

REPORT INFORMATION
  Report Type: Spontaneous
  Country: US (occurrence: US)
  Receive Date: 20150223
  Receipt Date: 20150223
  Transmission Date: 20150721
  Serious: No
  Sender: FDA-Public Use
  Company Number: US-ENDO PHARMACEUTICALS INC.-HCDA20140137

PATIENT
  Sex: Female

DRUGS (3)
  1. HYDROCODONE BITARTRATE/APAP TABLETS  7.5MG/300MG [Suspect]
     Active Substance: ACETAMINOPHEN\HYDROCODONE BITARTRATE
     Indication: TOOTH INFECTION
     Dosage: UNKNOWN
     Route: 048
  2. VICODIN [Concomitant]
     Active Substance: ACETAMINOPHEN\HYDROCODONE BITARTRATE
     Indication: SURGERY
  3. VICODIN [Concomitant]
     Active Substance: ACETAMINOPHEN\HYDROCODONE BITARTRATE
     Indication: TOOTH INFECTION
     Dosage: UNKNOWN
     Route: 048

REACTIONS (1)
  - Headache [Recovered/Resolved]
